FAERS Safety Report 7595074-3 (Version None)
Quarter: 2011Q3

REPORT INFORMATION
  Report Type: 
  Country: None (occurrence: None)
  Receive Date: 20110707
  Receipt Date: 20110627
  Transmission Date: 20111222
  Serious: Yes (Other)
  Sender: FDA-Public Use
  Company Number: US-BAYER-2011-045310

PATIENT
  Sex: Male

DRUGS (2)
  1. MOISTURIZER [Suspect]
     Dosage: 3 TIMES A DAY
  2. SORAFENIB (RAF KINASE INHIBITOR) [Suspect]
     Indication: HEPATIC NEOPLASM MALIGNANT
     Dosage: 200 MG, BID
     Route: 048
     Dates: start: 20110427

REACTIONS (8)
  - GAIT DISTURBANCE [None]
  - DYSSTASIA [None]
  - DECREASED APPETITE [None]
  - PAIN IN EXTREMITY [None]
  - DYSGEUSIA [None]
  - ERYTHEMA [None]
  - BLISTER [None]
  - WEIGHT DECREASED [None]
